FAERS Safety Report 5025815-0 (Version None)
Quarter: 2006Q2

REPORT INFORMATION
  Report Type: 
  Country: None (occurrence: None)
  Receive Date: 20060427
  Receipt Date: 20050418
  Transmission Date: 20061013
  Serious: Yes (Other)
  Sender: FDA-Public Use
  Company Number: 2005061648

PATIENT
  Age: 11 Year
  Sex: Female
  Weight: 56.6996 kg

DRUGS (2)
  1. ZITHROMAX [Suspect]
     Indication: PHARYNGITIS STREPTOCOCCAL
     Dosage: 250 MG (250 MG, EVERYDAY), ORAL
     Route: 048
     Dates: start: 20050319, end: 20050323
  2. CARBAMAZEPINE [Suspect]
     Indication: BIPOLAR DISORDER
     Dates: start: 20050201, end: 20050402

REACTIONS (5)
  - DRUG INTERACTION [None]
  - HYPERSENSITIVITY [None]
  - STEVENS-JOHNSON SYNDROME [None]
  - URINE ANALYSIS ABNORMAL [None]
  - VISION BLURRED [None]
